FAERS Safety Report 10502688 (Version 1)
Quarter: 2014Q4

REPORT INFORMATION
  Report Type: Spontaneous
  Country: IT (occurrence: IT)
  Receive Date: 20141007
  Receipt Date: 20141007
  Transmission Date: 20150528
  Serious: Yes (Hospitalization, Other)
  Sender: FDA-Public Use
  Company Number: IT-WATSON-2014-21309

PATIENT
  Age: 42 Year
  Sex: Female

DRUGS (2)
  1. IRBESARTAN (UNKNOWN) [Suspect]
     Active Substance: IRBESARTAN
     Indication: HYPERTENSION
     Dosage: 150 MG, DAILY
     Route: 065
  2. ETHINYLESTRADIOL-GESTODENE (UNKNOWN) [Interacting]
     Active Substance: ETHINYL ESTRADIOL\GESTODENE
     Indication: CONTRACEPTION
     Dosage: UNK
     Route: 048

REACTIONS (2)
  - Autoimmune hepatitis [Recovered/Resolved]
  - Herbal interaction [Recovered/Resolved]
